FAERS Safety Report 4356566-3 (Version None)
Quarter: 2004Q2

REPORT INFORMATION
  Report Type: 
  Country: None (occurrence: None)
  Receive Date: 20040507
  Receipt Date: 20040423
  Transmission Date: 20050107
  Serious: Yes (Hospitalization, Other)
  Sender: FDA-Public Use
  Company Number: DE_040413383

PATIENT
  Age: 54 Year
  Sex: Male

DRUGS (6)
  1. ZYPREXA [Suspect]
     Indication: MANIA
     Dosage: 30 MG DAY
     Dates: start: 20040310
  2. ZYPREXA [Suspect]
     Indication: SCHIZOPHRENIFORM DISORDER
     Dosage: 30 MG DAY
     Dates: start: 20040310
  3. LORAZEPAM [Concomitant]
  4. ACETYLCYSTEINE [Concomitant]
  5. FUROSEMIDE [Concomitant]
  6. QUILONUM - SLOW RELEASE (LITHIUM CARBONATE) [Concomitant]

REACTIONS (2)
  - PNEUMONIA [None]
  - RESPIRATORY FAILURE [None]
